FAERS Safety Report 8502841-8 (Version None)
Quarter: 2012Q3

REPORT INFORMATION
  Report Type: 
  Country: None (occurrence: None)
  Receive Date: 20120702
  Receipt Date: 20120619
  Transmission Date: 20120928
  Serious: Yes (Hospitalization)
  Sender: FDA-Public Use
  Company Number: FK201201743

PATIENT
  Age: 59 Year
  Sex: Male

DRUGS (3)
  1. OXALIPLATIN [Concomitant]
  2. FLUOROURACIL [Suspect]
     Indication: RECTAL CANCER
     Dosage: 500 MG/M2, 1 WK, INTRAVENOUS BOLUS
     Route: 040
  3. LEUCOVORIN CALCIUM [Concomitant]

REACTIONS (1)
  - ENCEPHALOPATHY [None]
